FAERS Safety Report 8263800-6 (Version None)
Quarter: 2012Q2

REPORT INFORMATION
  Report Type: 
  Country: None (occurrence: None)
  Receive Date: 20120405
  Receipt Date: 20120402
  Transmission Date: 20120825
  Serious: Yes (Hospitalization)
  Sender: FDA-Public Use
  Company Number: US-ALLERGAN-1201748US

PATIENT
  Age: 62 Year
  Sex: Female
  Weight: 70.748 kg

DRUGS (9)
  1. BOTOX COSMETIC [Suspect]
     Dosage: UNK
     Dates: start: 20100518, end: 20100518
  2. BOTOX COSMETIC [Suspect]
     Dosage: UNK
     Dates: start: 20101229, end: 20101229
  3. BOTOX COSMETIC [Suspect]
     Indication: SKIN WRINKLING
     Dosage: 45 UNITS, SINGLE
     Dates: start: 20120203, end: 20120203
  4. BOTOX COSMETIC [Suspect]
     Dosage: UNK
     Dates: start: 20070530, end: 20070530
  5. BOTOX COSMETIC [Suspect]
     Dosage: UNK
     Dates: start: 20110126, end: 20110126
  6. BOTOX COSMETIC [Suspect]
     Dosage: UNK
     Dates: start: 20090624, end: 20090624
  7. BOTOX COSMETIC [Suspect]
     Dosage: UNK
     Dates: start: 20081212, end: 20081212
  8. BOTOX COSMETIC [Suspect]
     Dosage: UNK
     Dates: start: 20120124, end: 20120124
  9. BOTOX COSMETIC [Suspect]
     Dosage: UNK
     Dates: start: 20080507, end: 20080507

REACTIONS (3)
  - WRONG TECHNIQUE IN DRUG USAGE PROCESS [None]
  - CHEST PAIN [None]
  - HYPERTENSION [None]
